FAERS Safety Report 9346000 (Version 3)
Quarter: 2013Q4

REPORT INFORMATION
  Report Type: Report from Study
  Country: US (occurrence: US)
  Receive Date: 20130613
  Receipt Date: 20131218
  Transmission Date: 20140711
  Serious: Yes (Hospitalization, Other)
  Sender: FDA-Public Use
  Company Number: US-ROCHE-1144740

PATIENT
  Age: 29 Year
  Sex: Female
  Weight: 110.78 kg

DRUGS (17)
  1. OMALIZUMAB [Suspect]
     Indication: ASTHMA
     Dosage: MOST RECENT DOSE TAKEN ON 10/SEP/2012 HER FIRST TRIMESTER
     Route: 058
     Dates: start: 20110123, end: 20120910
  2. PERCOCET [Concomitant]
     Indication: BACK INJURY
  3. PERCOCET [Concomitant]
     Indication: NECK INJURY
  4. TRAMADOL [Concomitant]
     Indication: NECK INJURY
  5. TRAMADOL [Concomitant]
     Indication: BACK INJURY
  6. LYRICA [Concomitant]
     Indication: NECK INJURY
  7. LYRICA [Concomitant]
     Indication: BACK INJURY
  8. PROAIR (UNITED STATES) [Concomitant]
     Indication: ASTHMA
  9. SYMBICORT [Concomitant]
     Indication: ASTHMA
  10. TYLENOL [Concomitant]
     Indication: PAIN
  11. ZOFRAN [Concomitant]
     Indication: NAUSEA
  12. FLAGYL [Concomitant]
  13. PULMICORT INHALER [Concomitant]
     Indication: ASTHMA
  14. KEFLEX [Concomitant]
     Indication: VAGINAL INFECTION
     Route: 048
  15. HYDROCORTISONE [Concomitant]
     Indication: HAEMORRHOIDS
     Route: 054
     Dates: start: 201305
  16. CERVIDIL (UNITED STATES) [Concomitant]
     Route: 067
     Dates: start: 20130525, end: 20130526
  17. PITOCIN [Concomitant]
     Indication: LABOUR INDUCTION
     Route: 042
     Dates: start: 20130526, end: 20130526

REACTIONS (5)
  - Bacterial vaginosis [Unknown]
  - Pre-eclampsia [Recovered/Resolved]
  - Influenza [Unknown]
  - Postpartum depression [Unknown]
  - Exposure during pregnancy [Unknown]
